FAERS Safety Report 10626561 (Version 1)
Quarter: 2014Q4

REPORT INFORMATION
  Report Type: Spontaneous
  Country: FR (occurrence: FR)
  Receive Date: 20141204
  Receipt Date: 20141204
  Transmission Date: 20150529
  Serious: Yes (Other)
  Sender: FDA-Public Use
  Company Number: FR-ASTRAZENECA-2014SE91785

PATIENT
  Age: 17830 Day
  Sex: Female

DRUGS (6)
  1. RISPERDAL [Concomitant]
     Active Substance: RISPERIDONE
     Dosage: SHEDULED FOR THE LAST 15 DAYS 0.5 DF
  2. OMEGA-3 ACIDS [Concomitant]
     Active Substance: OMEGA-3 FATTY ACIDS
  3. VITAMINS [Concomitant]
     Active Substance: VITAMINS
  4. RISPERDAL [Concomitant]
     Active Substance: RISPERIDONE
     Dates: end: 20141124
  5. XEROQUEL [Suspect]
     Active Substance: QUETIAPINE FUMARATE
     Indication: SCHIZOPHRENIA
     Route: 048
     Dates: start: 20141125, end: 20141125
  6. RISPERDAL [Concomitant]
     Active Substance: RISPERIDONE
     Dates: start: 20141125, end: 20141125

REACTIONS (6)
  - Suffocation feeling [Recovered/Resolved]
  - Acute psychosis [Recovered/Resolved]
  - Negative thoughts [Recovered/Resolved]
  - Abdominal pain upper [Recovered/Resolved]
  - Respiratory distress [Recovered/Resolved]
  - Hypoaesthesia [Recovered/Resolved]

NARRATIVE: CASE EVENT DATE: 20141125
